FAERS Safety Report 24710792 (Version 1)
Quarter: 2024Q4

REPORT INFORMATION
  Report Type: Report from Study
  Country: IT (occurrence: IT)
  Receive Date: 20241209
  Receipt Date: 20241209
  Transmission Date: 20250114
  Serious: Yes (Death, Other)
  Sender: ABBVIE
  Company Number: IT-ABBVIE-6036224

PATIENT
  Age: 79 Year
  Sex: Male

DRUGS (5)
  1. VENETOCLAX [Suspect]
     Active Substance: VENETOCLAX
     Indication: Acute myeloid leukaemia
     Dosage: 10 MILLIGRAM; RAMP-UP DOSE
     Route: 048
     Dates: start: 20240930, end: 20240930
  2. VENETOCLAX [Suspect]
     Active Substance: VENETOCLAX
     Indication: Acute myeloid leukaemia
     Dosage: 20 MILLIGRAM;  RAMP-UP DOSE
     Route: 048
     Dates: start: 20241001, end: 20241001
  3. VENETOCLAX [Suspect]
     Active Substance: VENETOCLAX
     Indication: Acute myeloid leukaemia
     Dosage: 50 MILLIGRAM;  RAMP-UP DOSE
     Route: 048
     Dates: start: 20241002, end: 20241002
  4. VENETOCLAX [Suspect]
     Active Substance: VENETOCLAX
     Indication: Acute myeloid leukaemia
     Dosage: 70 MILLIGRAM
     Route: 048
     Dates: start: 20241003, end: 20241021
  5. AZACITIDINE [Suspect]
     Active Substance: AZACITIDINE
     Indication: Acute myeloid leukaemia
     Dosage: DAILY DOSE (MG/M2 BSA): 75; CYCLE 1
     Route: 065
     Dates: start: 20240930, end: 20241006

REACTIONS (1)
  - Septic shock [Fatal]

NARRATIVE: CASE EVENT DATE: 20241206
